FAERS Safety Report 5975729-4 (Version None)
Quarter: 2008Q4

REPORT INFORMATION
  Report Type: 
  Country: None (occurrence: None)
  Receive Date: 20081124
  Receipt Date: 20080905
  Transmission Date: 20090506
  Serious: No
  Sender: FDA-Public Use
  Company Number: 2008SP003784

PATIENT
  Age: 75 Year
  Sex: Female
  Weight: 46.2669 kg

DRUGS (14)
  1. NOXAFIL [Suspect]
     Indication: ASPERGILLOSIS
     Dosage: 400 MG; BID; PO
     Route: 048
     Dates: start: 20071101, end: 20080601
  2. PROGRAF (CON.) [Concomitant]
  3. VALCYTE (CON.) [Concomitant]
  4. PROCRIT (CON.) [Concomitant]
  5. PRILOSEC /00661201/ (CON.) [Concomitant]
  6. TOPROL XL (CON.) [Concomitant]
  7. SYNTHROID (CON.) [Concomitant]
  8. ADVAIR (CON.) [Concomitant]
  9. SINGULAR (CON.) [Concomitant]
  10. ALBUTEROL (CON.) [Concomitant]
  11. ACTONEL (CON.) [Concomitant]
  12. AMBIEN (CON.) [Concomitant]
  13. ARANESP (CON.) [Concomitant]
  14. ASPIRIN (CON.) [Concomitant]

REACTIONS (3)
  - FATIGUE [None]
  - HYPERSOMNIA [None]
  - LETHARGY [None]
